FAERS Safety Report 18963625 (Version 3)
Quarter: 2021Q1

REPORT INFORMATION
  Report Type: Spontaneous
  Country: US (occurrence: US)
  Receive Date: 20210303
  Receipt Date: 20210325
  Transmission Date: 20210420
  Serious: Yes (Hospitalization, Other)
  Sender: FDA-Public Use
  Company Number: US-BAXTER-2021BAX003914

PATIENT
  Age: 69 Year
  Sex: Female

DRUGS (1)
  1. BUPIVACAINE HYDROCHLORIDE IN 8.25% DEXTROSE INJECTION USP [Suspect]
     Active Substance: BUPIVACAINE HYDROCHLORIDE
     Indication: SPINAL ANAESTHESIA
     Route: 008

REACTIONS (9)
  - Vasospasm [Not Recovered/Not Resolved]
  - Functional gastrointestinal disorder [Not Recovered/Not Resolved]
  - Paraplegia [Recovering/Resolving]
  - Spinal cord injury [Not Recovered/Not Resolved]
  - Myelitis [Unknown]
  - Meningitis chemical [Recovering/Resolving]
  - Motor dysfunction [Not Recovered/Not Resolved]
  - Bladder dysfunction [Not Recovered/Not Resolved]
  - Neuralgia [Not Recovered/Not Resolved]
